FAERS Safety Report 25575407 (Version 1)
Quarter: 2025Q3

REPORT INFORMATION
  Report Type: Spontaneous
  Country: CN (occurrence: CN)
  Receive Date: 20250718
  Receipt Date: 20250718
  Transmission Date: 20251020
  Serious: Yes (Other)
  Sender: BAXTER
  Company Number: None

PATIENT
  Age: 57 Year
  Sex: Female
  Weight: 64 kg

DRUGS (4)
  1. CYCLOPHOSPHAMIDE [Suspect]
     Active Substance: CYCLOPHOSPHAMIDE
     Indication: Breast cancer female
     Dosage: 0.9 G, QD, IVGTT, D1, COMBINED WITH 0.9% SODIUM CHLORIDE INJECTION 50ML
     Route: 041
     Dates: start: 20250605, end: 20250605
  2. SODIUM CHLORIDE [Suspect]
     Active Substance: SODIUM CHLORIDE
     Indication: Medication dilution
     Route: 041
     Dates: start: 20250605, end: 20250605
  3. DEXTROSE [Suspect]
     Active Substance: DEXTROSE MONOHYDRATE
     Indication: Medication dilution
     Route: 041
     Dates: start: 20250605, end: 20250605
  4. DOXORUBICIN HYDROCHLORIDE [Suspect]
     Active Substance: DOXORUBICIN HYDROCHLORIDE
     Indication: Breast cancer female
     Dosage: 48 MG, QD, IVGTT, D1 WITH SOLVENT 5% GLUCOSE INJECTION 500ML
     Route: 041
     Dates: start: 20250605, end: 20250605

REACTIONS (1)
  - Leukopenia [Unknown]

NARRATIVE: CASE EVENT DATE: 20250625
